FAERS Safety Report 8457765-1 (Version None)
Quarter: 2012Q2

REPORT INFORMATION
  Report Type: 
  Country: None (occurrence: None)
  Receive Date: 20120622
  Receipt Date: 20120608
  Transmission Date: 20120825
  Serious: Yes (Hospitalization, Other)
  Sender: FDA-Public Use
  Company Number: US-PFIZER INC-2010034440

PATIENT
  Sex: Male
  Weight: 65.7 kg

DRUGS (8)
  1. CALCIUM [Concomitant]
     Dosage: 667 MG CAPSULE, 2X/DAY WITH MEALS
  2. HYDRALAZINE [Concomitant]
     Dosage: 50 MG, EVERY SIX HOURS
  3. LABETALOL [Concomitant]
     Dosage: 100 MG TWO TABLETS TWO TIMES A DAY
  4. CLONIDINE [Concomitant]
     Dosage: 0.2 MG, 3X/DAY
  5. DILANTIN [Suspect]
     Dosage: 1 G, UNK
     Route: 042
     Dates: start: 20091007, end: 20091007
  6. AMLODIPINE [Concomitant]
     Dosage: ONCE DAILY
  7. DOXAZOSIN [Concomitant]
     Dosage: 1 MG, ONE TABLET, 1X/DAY
  8. DILANTIN [Suspect]
     Indication: CONVULSION
     Dosage: 100 MG, 3X/DAY
     Route: 048
     Dates: start: 20091009, end: 20091019

REACTIONS (1)
  - STEVENS-JOHNSON SYNDROME [None]
